FAERS Safety Report 13468315 (Version 1)
Quarter: 2017Q2

REPORT INFORMATION
  Report Type: Spontaneous
  Country: ES (occurrence: ES)
  Receive Date: 20170421
  Receipt Date: 20170421
  Transmission Date: 20170830
  Serious: Yes (Other)
  Sender: FDA-Public Use
  Company Number: ES-JUBILANT CADISTA PHARMACEUTICALS-2017JUB00119

PATIENT
  Age: 55 Year
  Sex: Female

DRUGS (4)
  1. UNSPECIFIED NONSTEROIDAL ANTI-INFLAMMATORY DRUGS [Concomitant]
     Indication: OSTEOPOROSIS
  2. ALENDRONATE AND CHOLECALCIFEROL [Suspect]
     Active Substance: ALENDRONATE SODIUM\CHOLECALCIFEROL
     Indication: OSTEOPENIA
     Dosage: 70 MG/5600 IU, 1X/WEEK
     Route: 065
     Dates: start: 201009, end: 201405
  3. ALENDRONATE AND CHOLECALCIFEROL [Suspect]
     Active Substance: ALENDRONATE SODIUM\CHOLECALCIFEROL
     Indication: OSTEOPOROSIS
  4. UNSPECIFIED NONSTEROIDAL ANTI-INFLAMMATORY DRUGS [Concomitant]
     Indication: OSTEOPENIA
     Dosage: UNK
     Route: 065
     Dates: start: 201009

REACTIONS (1)
  - Sternal fracture [Recovering/Resolving]

NARRATIVE: CASE EVENT DATE: 201404
